FAERS Safety Report 12884275 (Version 3)
Quarter: 2017Q1

REPORT INFORMATION
  Report Type: Spontaneous
  Country: JP (occurrence: JP)
  Receive Date: 20161026
  Receipt Date: 20170130
  Transmission Date: 20170428
  Serious: Yes (Other)
  Sender: FDA-Public Use
  Company Number: JP-AMGEN-JPNSP2016147060

PATIENT
  Age: 78 Year
  Sex: Female

DRUGS (7)
  1. RANMARK [Suspect]
     Active Substance: DENOSUMAB
     Indication: METASTASES TO BONE
     Dosage: 120 MG, QMO
     Route: 058
     Dates: start: 20140226, end: 20161019
  2. CARBOCISTEINE [Concomitant]
     Active Substance: CARBOCYSTEINE
     Dosage: UNK
     Route: 065
  3. FASLODEX [Concomitant]
     Active Substance: FULVESTRANT
     Indication: BREAST CANCER
     Dosage: 500 MG, QMO
     Route: 030
  4. RULID [Concomitant]
     Active Substance: ROXITHROMYCIN
     Indication: OSTEONECROSIS OF JAW
     Dosage: UNK
     Route: 048
  5. DENOTAS [Concomitant]
     Active Substance: CALCIUM CARBONATE\CHOLECALCIFEROL\MAGNESIUM CARBONATE
     Dosage: UNK, QD
     Route: 048
  6. MEIACT [Concomitant]
     Active Substance: CEFDITOREN PIVOXIL
     Indication: OSTEONECROSIS OF JAW
     Dosage: UNK
     Route: 048
  7. POVIDONE-IODINE. [Concomitant]
     Active Substance: POVIDONE-IODINE
     Indication: OSTEONECROSIS OF JAW
     Dosage: UNK
     Route: 048

REACTIONS (1)
  - Osteonecrosis of jaw [Not Recovered/Not Resolved]

NARRATIVE: CASE EVENT DATE: 20160125
